FAERS Safety Report 7051548-5 (Version None)
Quarter: 2010Q4

REPORT INFORMATION
  Report Type: 
  Country: None (occurrence: None)
  Receive Date: 20101019
  Receipt Date: 20101005
  Transmission Date: 20110411
  Serious: Yes (Life-Threatening, Hospitalization)
  Sender: FDA-Public Use
  Company Number: DE-JNJFOC-20101002069

PATIENT
  Age: 41 Year
  Sex: Male

DRUGS (6)
  1. INFLIXIMAB, RECOMBINANT [Suspect]
     Indication: COLITIS ULCERATIVE
     Route: 042
  2. AZATHIOPRINE [Suspect]
     Indication: COLITIS ULCERATIVE
  3. PREDNISOLONE [Suspect]
     Indication: COLITIS ULCERATIVE
  4. MESALAZINE [Suspect]
     Indication: COLITIS ULCERATIVE
  5. BUTYLSCOPOLAMINE [Concomitant]
     Indication: COLITIS ULCERATIVE
  6. METAMIZOLE [Concomitant]
     Indication: COLITIS ULCERATIVE

REACTIONS (7)
  - ABSCESS [None]
  - AORTIC VALVE INCOMPETENCE [None]
  - ATRIOVENTRICULAR BLOCK COMPLETE [None]
  - CARDIAC ARREST [None]
  - LEFT VENTRICULAR DYSFUNCTION [None]
  - STREPTOCOCCUS TEST POSITIVE [None]
  - VENTRICULAR FIBRILLATION [None]
